FAERS Safety Report 9540801 (Version 1)
Quarter: 2013Q3

REPORT INFORMATION
  Report Type: Spontaneous
  Country: KR (occurrence: KR)
  Receive Date: 20130920
  Receipt Date: 20130920
  Transmission Date: 20140515
  Serious: Yes (Death, Hospitalization, Other)
  Sender: FDA-Public Use
  Company Number: PHHY2013KR102982

PATIENT
  Age: 88 Year
  Sex: Male

DRUGS (2)
  1. DIGOXIN [Suspect]
     Indication: ATRIAL FIBRILLATION
  2. HEPARIN [Suspect]

REACTIONS (12)
  - Sepsis [Fatal]
  - Cerebral infarction [Unknown]
  - Heart rate decreased [Unknown]
  - Sputum purulent [Unknown]
  - Stridor [Unknown]
  - Epiglottitis [Unknown]
  - Hemiplegia [Unknown]
  - Stupor [Unknown]
  - Eye movement disorder [Unknown]
  - Transient ischaemic attack [Unknown]
  - Hemiparesis [Unknown]
  - Haematuria [Unknown]
